FAERS Safety Report 20993067 (Version 1)
Quarter: 2022Q2

REPORT INFORMATION
  Report Type: Spontaneous
  Country: US (occurrence: US)
  Receive Date: 20220622
  Receipt Date: 20220622
  Transmission Date: 20220720
  Serious: No
  Sender: FDA-Public Use
  Company Number: US-Blueprint Medicines Corporation-201

PATIENT
  Sex: Female

DRUGS (1)
  1. AYVAKIT [Suspect]
     Active Substance: AVAPRITINIB
     Indication: Systemic mastocytosis
     Dosage: 50MG ONCE DAILY
     Route: 048
     Dates: start: 20210810

REACTIONS (6)
  - Feeling abnormal [Recovering/Resolving]
  - Nervous system disorder [Recovering/Resolving]
  - Thyroid disorder [Unknown]
  - Blood potassium decreased [Recovered/Resolved]
  - Fatigue [Unknown]
  - Headache [Unknown]
